FAERS Safety Report 8111231-1 (Version None)
Quarter: 2012Q1

REPORT INFORMATION
  Report Type: 
  Country: None (occurrence: None)
  Receive Date: 20120203
  Receipt Date: 20110706
  Transmission Date: 20120608
  Serious: No
  Sender: FDA-Public Use
  Company Number: US-GLAXOSMITHKLINE-A0935145A

PATIENT
  Age: 22 Year
  Sex: Male

DRUGS (2)
  1. LAMOTRIGINE [Suspect]
     Indication: BIPOLAR DISORDER
     Dosage: 2TAB PER DAY
     Route: 048
     Dates: start: 20110601
  2. XANAX [Concomitant]

REACTIONS (3)
  - DIPLOPIA [None]
  - DIZZINESS [None]
  - VISION BLURRED [None]
